FAERS Safety Report 19441162 (Version 1)
Quarter: 2021Q2

REPORT INFORMATION
  Report Type: Spontaneous
  Country: US (occurrence: US)
  Receive Date: 20210621
  Receipt Date: 20210621
  Transmission Date: 20210717
  Serious: No
  Sender: FDA-Public Use
  Company Number: US-TEVA-2021-US-1918820

PATIENT
  Sex: Female

DRUGS (2)
  1. CYCLOSPORIN MODIFIED [Suspect]
     Active Substance: CYCLOSPORINE
  2. CYCLOSPORIN MODIFIED [Suspect]
     Active Substance: CYCLOSPORINE
     Route: 048

REACTIONS (1)
  - Hypertrichosis [Unknown]
